FAERS Safety Report 10228783 (Version 1)
Quarter: 2014Q2

REPORT INFORMATION
  Report Type: Report from Study
  Country: CO (occurrence: CO)
  Receive Date: 20140610
  Receipt Date: 20140610
  Transmission Date: 20141212
  Serious: Yes (Death)
  Sender: FDA-Public Use
  Company Number: CO-ABBVIE-14P-036-1246273-00

PATIENT
  Age: 30 Year
  Sex: Female
  Weight: 44 kg

DRUGS (4)
  1. ZEMPLAR [Suspect]
     Indication: HYPERPARATHYROIDISM SECONDARY
     Route: 048
     Dates: start: 20130426, end: 20140521
  2. OMEPRAZOLE [Concomitant]
     Indication: PRODUCT USED FOR UNKNOWN INDICATION
  3. FUROSEMIDE [Concomitant]
     Indication: PRODUCT USED FOR UNKNOWN INDICATION
  4. OXYGEN [Concomitant]
     Indication: PRODUCT USED FOR UNKNOWN INDICATION
     Dosage: 12 HOURS PER NIGHT

REACTIONS (8)
  - Pyrexia [Fatal]
  - Hypotension [Fatal]
  - Hypoperfusion [Fatal]
  - Malaise [Fatal]
  - Fatigue [Fatal]
  - General physical health deterioration [Fatal]
  - Cardio-respiratory arrest [Fatal]
  - Pulmonary hypertension [Fatal]
